FAERS Safety Report 22635891 (Version 1)
Quarter: 2023Q2

REPORT INFORMATION
  Report Type: Spontaneous
  Country: US (occurrence: US)
  Receive Date: 20230623
  Receipt Date: 20230623
  Transmission Date: 20230722
  Serious: No
  Sender: FDA-Public Use
  Company Number: US-BoehringerIngelheim-2023-BI-245551

PATIENT
  Age: 59 Year
  Sex: Female

DRUGS (2)
  1. SPIRIVA RESPIMAT [Suspect]
     Active Substance: TIOTROPIUM BROMIDE
     Indication: Chronic obstructive pulmonary disease
     Route: 055
     Dates: start: 2019
  2. COMBIVENT RESPIMAT [Suspect]
     Active Substance: ALBUTEROL SULFATE\IPRATROPIUM BROMIDE
     Indication: Chronic obstructive pulmonary disease
     Route: 055
     Dates: start: 2019

REACTIONS (6)
  - Off label use [Unknown]
  - Contraindicated product administered [Unknown]
  - Product delivery mechanism issue [Unknown]
  - Dyspnoea [Recovered/Resolved]
  - Fatigue [Recovered/Resolved]
  - Product prescribing error [Unknown]

NARRATIVE: CASE EVENT DATE: 20190101
